FAERS Safety Report 23581256 (Version 1)
Quarter: 2024Q1

REPORT INFORMATION
  Report Type: Spontaneous
  Country: CN (occurrence: CN)
  Receive Date: 20240229
  Receipt Date: 20240229
  Transmission Date: 20240410
  Serious: Yes (Hospitalization)
  Sender: FDA-Public Use
  Company Number: CN-GLAXOSMITHKLINE-CN2024APC024631

PATIENT

DRUGS (2)
  1. LAMOTRIGINE [Suspect]
     Active Substance: LAMOTRIGINE
     Indication: Epilepsy
     Dosage: 50 MG, QD
     Route: 048
     Dates: start: 20240118, end: 20240214
  2. LEVETIRACETAM [Concomitant]
     Active Substance: LEVETIRACETAM
     Indication: Epilepsy
     Dosage: 1 DF, BID, 1G
     Route: 048
     Dates: start: 20180101, end: 20240223

REACTIONS (5)
  - Drug eruption [Recovering/Resolving]
  - Erythema [Recovering/Resolving]
  - Rash papular [Recovering/Resolving]
  - Pruritus [Recovering/Resolving]
  - Herpes dermatitis [Recovering/Resolving]

NARRATIVE: CASE EVENT DATE: 20240210
